FAERS Safety Report 12422959 (Version 1)
Quarter: 2016Q2

REPORT INFORMATION
  Report Type: Spontaneous
  Country: US (occurrence: None)
  Receive Date: 20160531
  Receipt Date: 20160531
  Transmission Date: 20160815
  Serious: Yes (Other)
  Sender: FDA-Public Use
  Company Number: None

PATIENT
  Age: 32 Year
  Sex: Female
  Weight: 50.8 kg

DRUGS (1)
  1. CREST PRO-HEALTH ADVANCED W/EXTRA DEEP CLEAN [Suspect]
     Active Substance: SODIUM FLUORIDE
     Indication: DENTAL CLEANING
     Dosage: 1 LITER TWICE A DAY SWISHED AND RINSED THE MOUTH AND SPIT
     Dates: start: 20160524, end: 20160529

REACTIONS (5)
  - Pain in jaw [None]
  - Swelling face [None]
  - Neck pain [None]
  - Ear pain [None]
  - Parotitis [None]

NARRATIVE: CASE EVENT DATE: 20160529
